FAERS Safety Report 6446417-5 (Version None)
Quarter: 2009Q4

REPORT INFORMATION
  Report Type: 
  Country: None (occurrence: None)
  Receive Date: 20091119
  Receipt Date: 20091109
  Transmission Date: 20100525
  Serious: Yes (Hospitalization)
  Sender: FDA-Public Use
  Company Number: PHEH2009US10874

PATIENT
  Sex: Female

DRUGS (1)
  1. EXJADE [Suspect]
     Indication: SICKLE CELL ANAEMIA
     Dosage: 1625 MG, QD
     Route: 048

REACTIONS (3)
  - ARTHRALGIA [None]
  - DIARRHOEA [None]
  - SICKLE CELL ANAEMIA WITH CRISIS [None]
